FAERS Safety Report 14707706 (Version 2)
Quarter: 2018Q2

REPORT INFORMATION
  Report Type: Spontaneous
  Country: US (occurrence: US)
  Receive Date: 20180403
  Receipt Date: 20180508
  Transmission Date: 20180711
  Serious: No
  Sender: FDA-Public Use
  Company Number: US-TEVA-2018-US-865343

PATIENT
  Sex: Female

DRUGS (3)
  1. CLONAZEPAM. [Suspect]
     Active Substance: CLONAZEPAM
     Indication: MYOCLONIC EPILEPSY
  2. CLONAZEPAM. [Suspect]
     Active Substance: CLONAZEPAM
     Indication: TREMOR
  3. CLONAZEPAM. [Suspect]
     Active Substance: CLONAZEPAM

REACTIONS (2)
  - Gait disturbance [Not Recovered/Not Resolved]
  - Dysgraphia [Not Recovered/Not Resolved]
